FAERS Safety Report 5268516-6 (Version None)
Quarter: 2007Q1

REPORT INFORMATION
  Report Type: 
  Country: None (occurrence: None)
  Receive Date: 20061213
  Receipt Date: 20040825
  Transmission Date: 20070707
  Serious: Yes (Other)
  Sender: FDA-Public Use
  Company Number: 2004UW18079

PATIENT
  Age: 64 Year
  Sex: Male
  Weight: 65.7716 kg

DRUGS (12)
  1. IRESSA [Suspect]
     Indication: NON-SMALL CELL LUNG CANCER
     Dosage: 250 MG QD PO
     Route: 048
     Dates: start: 20040819
  2. MUCINEX [Concomitant]
  3. XANAX [Concomitant]
  4. ALLEGRA [Concomitant]
  5. LEXAPRO [Concomitant]
  6. FLEXERIL [Concomitant]
  7. PREVACID [Concomitant]
  8. OXYCONTIN [Concomitant]
  9. OXYCODONE HCL [Concomitant]
  10. LASIX [Concomitant]
  11. POTASSIUM ACETATE [Concomitant]
  12. ALBUTEROL [Concomitant]

REACTIONS (4)
  - ERYTHEMA [None]
  - GLOSSODYNIA [None]
  - RASH [None]
  - STOMATITIS [None]
